FAERS Safety Report 6756714-1 (Version None)
Quarter: 2010Q2

REPORT INFORMATION
  Report Type: 
  Country: None (occurrence: None)
  Receive Date: 20100604
  Receipt Date: 20100521
  Transmission Date: 20101027
  Serious: Yes (Other)
  Sender: FDA-Public Use
  Company Number: US-ELI_LILLY_AND_COMPANY-US201005006510

PATIENT
  Age: 55 Year
  Sex: Male

DRUGS (7)
  1. EFFIENT [Suspect]
     Indication: PERCUTANEOUS CORONARY INTERVENTION
     Dosage: 10 MG, DAILY (1/D)
     Dates: start: 20091001
  2. CRESTOR [Concomitant]
     Dosage: 20 MG, UNKNOWN
  3. OMEGA /00694402/ [Concomitant]
     Dosage: 1 MG, UNKNOWN
  4. NIACIN [Concomitant]
  5. BYSTOLIC [Concomitant]
     Dosage: 5 MG, UNKNOWN
  6. RAMIPRIL /00885601/ [Concomitant]
  7. ASPIRIN [Concomitant]
     Dosage: 325 MG, UNKNOWN

REACTIONS (1)
  - IN-STENT CORONARY ARTERY RESTENOSIS [None]
